FAERS Safety Report 11794582 (Version 1)
Quarter: 2015Q4

REPORT INFORMATION
  Report Type: Spontaneous
  Country: FR (occurrence: FR)
  Receive Date: 20151202
  Receipt Date: 20151202
  Transmission Date: 20160305
  Serious: Yes (Other)
  Sender: FDA-Public Use
  Company Number: FR-BRISTOL-MYERS SQUIBB COMPANY-BMS-2003-000007

PATIENT
  Age: 36 Year
  Sex: Female

DRUGS (5)
  1. STAVUDINE. [Suspect]
     Active Substance: STAVUDINE
     Indication: ANTIRETROVIRAL THERAPY
     Route: 065
  2. EFAVIRENZ [Suspect]
     Active Substance: EFAVIRENZ
     Indication: ANTIRETROVIRAL THERAPY
     Route: 065
  3. DIDANOSINE. [Suspect]
     Active Substance: DIDANOSINE
     Indication: ANTIRETROVIRAL THERAPY
     Route: 065
  4. ISONIAZID. [Suspect]
     Active Substance: ISONIAZID
     Indication: ANTIRETROVIRAL THERAPY
     Route: 065
  5. RIFAMYCIN SODIUM [Suspect]
     Active Substance: RIFAMYCIN SODIUM
     Indication: ANTIRETROVIRAL THERAPY
     Route: 065

REACTIONS (4)
  - Pregnancy [Recovered/Resolved]
  - Abortion induced [Unknown]
  - Placental insufficiency [Unknown]
  - Oligohydramnios [Unknown]

NARRATIVE: CASE EVENT DATE: 20000414
